FAERS Safety Report 13949205 (Version 1)
Quarter: 2017Q3

REPORT INFORMATION
  Report Type: Spontaneous
  Country: CN (occurrence: CN)
  Receive Date: 20170908
  Receipt Date: 20170908
  Transmission Date: 20171128
  Serious: Yes (Other)
  Sender: FDA-Public Use
  Company Number: CN-UNITED THERAPEUTICS-UNT-2017-012858

PATIENT
  Age: 23 Year
  Sex: Female

DRUGS (1)
  1. REMODULIN [Suspect]
     Active Substance: TREPROSTINIL
     Indication: PRODUCT USED FOR UNKNOWN INDICATION
     Dosage: 0.0075 ?G/KG, CONTINUING
     Route: 041
     Dates: start: 20170817, end: 20170824

REACTIONS (2)
  - Maternal exposure during pregnancy [Unknown]
  - Premature delivery [Unknown]

NARRATIVE: CASE EVENT DATE: 20170817
